FAERS Safety Report 12962245 (Version 1)
Quarter: 2016Q4

REPORT INFORMATION
  Report Type: Report from Study
  Country: None (occurrence: DE)
  Receive Date: 20161121
  Receipt Date: 20161121
  Transmission Date: 20170207
  Serious: Yes (Hospitalization, Other)
  Sender: FDA-Public Use
  Company Number: DE-ABBVIE-16P-062-1783166-00

PATIENT
  Sex: Female

DRUGS (4)
  1. HUMIRA [Suspect]
     Active Substance: ADALIMUMAB
     Route: 058
     Dates: start: 20120816, end: 20120816
  2. PREDNISOLON [Concomitant]
     Active Substance: PREDNISOLONE
     Indication: CROHN^S DISEASE
     Dates: start: 2003
  3. HUMIRA [Suspect]
     Active Substance: ADALIMUMAB
     Indication: INFLAMMATORY BOWEL DISEASE
     Route: 058
     Dates: start: 20120802, end: 20120802
  4. HUMIRA [Suspect]
     Active Substance: ADALIMUMAB
     Route: 058
     Dates: start: 20120830, end: 201601

REACTIONS (14)
  - Cellulitis [Unknown]
  - Leukocytosis [Recovered/Resolved]
  - Groin abscess [Unknown]
  - Peritonitis [Unknown]
  - Intestinal perforation [Unknown]
  - Anastomotic leak [Unknown]
  - Crohn^s disease [Unknown]
  - Inflammatory marker increased [Recovered/Resolved]
  - Abscess [Unknown]
  - Granulomatous lymphadenitis [Unknown]
  - Appendicitis [Unknown]
  - Abdominal adhesions [Unknown]
  - Enterocutaneous fistula [Recovered/Resolved]
  - Postoperative wound complication [Unknown]

NARRATIVE: CASE EVENT DATE: 2016
